FAERS Safety Report 9252000 (Version 1)
Quarter: 2013Q2

REPORT INFORMATION
  Report Type: Report from Study
  Country: GB (occurrence: GB)
  Receive Date: 20130424
  Receipt Date: 20130424
  Transmission Date: 20140414
  Serious: Yes (Hospitalization)
  Sender: FDA-Public Use
  Company Number: GB-ROCHE-1216819

PATIENT
  Age: 36 Year
  Sex: Male

DRUGS (6)
  1. OMALIZUMAB [Suspect]
     Indication: ASTHMA
     Route: 065
     Dates: start: 20120925
  2. OMALIZUMAB [Suspect]
     Route: 065
     Dates: start: 20121123
  3. PREDNISOLONE [Concomitant]
  4. SYMBICORT [Concomitant]
  5. PHYLLOCONTIN [Concomitant]
  6. MONTELUKAST [Concomitant]

REACTIONS (3)
  - Vomiting [Recovered/Resolved]
  - Hypophagia [Recovered/Resolved]
  - Nausea [Recovered/Resolved]
